FAERS Safety Report 18301891 (Version 1)
Quarter: 2020Q3

REPORT INFORMATION
  Report Type: Spontaneous
  Country: JP (occurrence: JP)
  Receive Date: 20200923
  Receipt Date: 20200923
  Transmission Date: 20201103
  Serious: Yes (Death, Other)
  Sender: FDA-Public Use
  Company Number: JP-PFIZER INC-2020363396

PATIENT

DRUGS (3)
  1. MEROPEN [Suspect]
     Active Substance: MEROPENEM
     Indication: SEPSIS
  2. FUNGUARD [Suspect]
     Active Substance: MICAFUNGIN SODIUM
     Dosage: UNK
     Route: 041
  3. MEROPEN [Suspect]
     Active Substance: MEROPENEM
     Indication: PNEUMONIA
     Dosage: 3 G, 1X/DAY
     Route: 041

REACTIONS (1)
  - Death [Fatal]
